FAERS Safety Report 9030753 (Version 2)
Quarter: 2013Q1

REPORT INFORMATION
  Report Type: Report from Study
  Country: DE (occurrence: DE)
  Receive Date: 20130123
  Receipt Date: 20130312
  Transmission Date: 20140127
  Serious: Yes (Hospitalization)
  Sender: FDA-Public Use
  Company Number: DE-ACTELION-A-US2012-78149

PATIENT
  Age: 75 Year
  Sex: Male
  Weight: 88 kg

DRUGS (13)
  1. VENTAVIS [Suspect]
     Indication: PULMONARY ARTERIAL HYPERTENSION
     Dosage: 2.5 ?G, UNK
     Route: 055
     Dates: start: 20120912, end: 20130114
  2. OMPRAZOLE [Concomitant]
  3. MARCUMAR [Concomitant]
  4. ATMADISC [Concomitant]
  5. LANTUS [Concomitant]
  6. SPIRIVA [Concomitant]
  7. L-THYROXIN [Concomitant]
  8. TORASEMID [Concomitant]
  9. DICLOFENAC [Concomitant]
  10. INSULIN HUMAN [Concomitant]
  11. SIMVASTATIN [Concomitant]
  12. REVATIO [Concomitant]
  13. OXYGEN [Concomitant]

REACTIONS (7)
  - Blood pressure fluctuation [Unknown]
  - Cardiovascular insufficiency [Recovered/Resolved]
  - Ventilation perfusion mismatch [Recovered/Resolved]
  - Oxygen consumption increased [Recovered/Resolved]
  - Oxygen saturation decreased [Recovered/Resolved]
  - Skin discolouration [Unknown]
  - Respiratory tract irritation [Unknown]
